FAERS Safety Report 21373811 (Version 1)
Quarter: 2022Q3

REPORT INFORMATION
  Report Type: Spontaneous
  Country: US (occurrence: US)
  Receive Date: 20220926
  Receipt Date: 20220926
  Transmission Date: 20221026
  Serious: Yes (Death, Hospitalization)
  Sender: FDA-Public Use
  Company Number: US-BRISTOL-MYERS SQUIBB COMPANY-2022-110954

PATIENT
  Age: 79 Year
  Sex: Male
  Weight: 93.89 kg

DRUGS (4)
  1. ELIQUIS [Suspect]
     Active Substance: APIXABAN
     Indication: Cerebrovascular accident prophylaxis
     Dosage: DOSE : 5MG; FREQ : TWICE DAILY, SPOUSE BELIEVES PATIENT STARTED MEDICATION IN MARCH OR APRIL 2022
     Route: 048
     Dates: start: 2022, end: 202209
  2. METOPROLOL [Concomitant]
     Active Substance: METOPROLOL
     Indication: Product used for unknown indication
  3. LISINOPRIL [Concomitant]
     Active Substance: LISINOPRIL
     Indication: Blood pressure measurement
  4. PANTOPRAZOLE [Concomitant]
     Active Substance: PANTOPRAZOLE
     Indication: Gastrooesophageal reflux disease

REACTIONS (2)
  - COVID-19 [Fatal]
  - Vomiting [Unknown]

NARRATIVE: CASE EVENT DATE: 20220915
